FAERS Safety Report 4919009-4 (Version None)
Quarter: 2006Q1

REPORT INFORMATION
  Report Type: 
  Country: None (occurrence: None)
  Receive Date: 20060222
  Receipt Date: 20050829
  Transmission Date: 20060701
  Serious: Yes (Death, Hospitalization, Other)
  Sender: FDA-Public Use
  Company Number: US-MERCK-0508USA04709

PATIENT
  Age: 82 Year
  Sex: Female
  Weight: 77 kg

DRUGS (4)
  1. VIOXX [Suspect]
     Indication: ARTHRITIS
     Route: 048
     Dates: start: 20010101, end: 20041001
  2. VIOXX [Suspect]
     Route: 048
     Dates: start: 20010101, end: 20041001
  3. TYLENOL [Concomitant]
     Route: 065
  4. ASPIRIN [Concomitant]
     Route: 065

REACTIONS (28)
  - ARTERIOSCLEROSIS CORONARY ARTERY [None]
  - ATRIAL FIBRILLATION [None]
  - CARDIAC ARREST [None]
  - CARDIAC FAILURE CONGESTIVE [None]
  - CAROTID ARTERY DISEASE [None]
  - CEREBRAL ATROPHY [None]
  - CEREBROVASCULAR ACCIDENT [None]
  - CHEST PAIN [None]
  - CONSTIPATION [None]
  - DEHYDRATION [None]
  - DYSPNOEA [None]
  - HYPERTENSION [None]
  - HYPOVOLAEMIA [None]
  - MYOCARDIAL INFARCTION [None]
  - OEDEMA [None]
  - ORTHOSTATIC HYPOTENSION [None]
  - RENAL FAILURE [None]
  - RENAL FAILURE ACUTE [None]
  - ROTATOR CUFF SYNDROME [None]
  - SICK SINUS SYNDROME [None]
  - SUBDURAL HAEMATOMA [None]
  - THROMBOSIS [None]
  - TROPONIN INCREASED [None]
  - URINARY TRACT INFECTION [None]
  - URINARY TRACT INFECTION ENTEROCOCCAL [None]
  - UROSEPSIS [None]
  - VOMITING [None]
  - WRIST FRACTURE [None]
